FAERS Safety Report 11139103 (Version 3)
Quarter: 2015Q2

REPORT INFORMATION
  Report Type: Spontaneous
  Country: PT (occurrence: None)
  Receive Date: 20150522
  Receipt Date: 20150604
  Transmission Date: 20150821
  Serious: Yes (Life-Threatening, Hospitalization, Disabling)
  Sender: FDA-Public Use
  Company Number: PT-H14001-15-00748

PATIENT
  Age: 33 Year
  Sex: Female

DRUGS (5)
  1. CEFAZOLIN HIKMA (CEFAZOLIN) (1 GRAM, UNKNOWN) (CEFAZOLIN) [Suspect]
     Active Substance: CEFAZOLIN
     Indication: PROPHYLAXIS
     Dosage: 2000 MG, 1 TOTAL
     Route: 042
     Dates: start: 20150512, end: 20150512
  2. BROMETO DE ROCURONIO KABI (ROCURONIUM BROMIDE) (10 MILLIGRAM/MILLILITERS) (ROCURONIUM BROMIDE) [Suspect]
     Active Substance: ROCURONIUM BROMIDE
     Indication: MUSCLE RELAXANT THERAPY
     Dosage: 50 MG, 1 TOTAL
     Route: 042
     Dates: start: 20150512, end: 20150512
  3. PROPOFOL-LIPURO (PROPOFOL) [Concomitant]
  4. ORADEXON (DEXAMETHASONE) [Concomitant]
  5. FENTANILO B.BRAUN (FENTANYL CITRATE) [Concomitant]

REACTIONS (3)
  - Drug administration error [None]
  - Product quality issue [None]
  - Anaphylactic shock [None]

NARRATIVE: CASE EVENT DATE: 20150512
